FAERS Safety Report 10856762 (Version 1)
Quarter: 2015Q1

REPORT INFORMATION
  Report Type: Spontaneous
  Country: US (occurrence: US)
  Receive Date: 20150223
  Receipt Date: 20150223
  Transmission Date: 20150721
  Serious: Yes (Hospitalization)
  Sender: FDA-Public Use
  Company Number: US-CELGENEUS-163-21880-12101982

PATIENT
  Age: 58 Year
  Sex: Male
  Weight: 98.9 kg

DRUGS (83)
  1. BACLOFEN. [Concomitant]
     Active Substance: BACLOFEN
     Indication: ADVERSE EVENT
     Route: 065
     Dates: start: 20130117, end: 20131112
  2. MELATONIN [Concomitant]
     Active Substance: MELATONIN
     Indication: PRODUCT USED FOR UNKNOWN INDICATION
     Route: 065
     Dates: start: 201402
  3. NAPROXEN. [Concomitant]
     Active Substance: NAPROXEN
     Indication: ADVERSE EVENT
     Route: 065
     Dates: start: 20140723
  4. HYDROMORPHONE [Concomitant]
     Active Substance: HYDROMORPHONE
     Indication: ADVERSE EVENT
     Route: 065
     Dates: start: 20140707
  5. DEXAMETHASONE. [Suspect]
     Active Substance: DEXAMETHASONE
     Route: 041
     Dates: start: 20121003
  6. MULTIVITAMINS [Concomitant]
     Active Substance: VITAMINS
     Indication: PRODUCT USED FOR UNKNOWN INDICATION
     Route: 065
     Dates: start: 20120901
  7. TYLENOL [Concomitant]
     Active Substance: ACETAMINOPHEN
     Route: 065
     Dates: start: 20121011, end: 20121011
  8. AZITHROMYCIN [Concomitant]
     Active Substance: AZITHROMYCIN ANHYDROUS
     Indication: PRODUCT USED FOR UNKNOWN INDICATION
     Route: 065
     Dates: start: 20140207, end: 20140212
  9. OMNIPAGUE [Concomitant]
     Indication: PRODUCT USED FOR UNKNOWN INDICATION
     Route: 065
     Dates: start: 20140707, end: 20140708
  10. NEUPOGEN [Concomitant]
     Active Substance: FILGRASTIM
     Indication: ADVERSE EVENT
     Route: 065
     Dates: start: 20140708, end: 20140714
  11. CEFAZOLIN [Concomitant]
     Active Substance: CEFAZOLIN
     Indication: ADVERSE EVENT
     Route: 065
     Dates: start: 20121015, end: 20121026
  12. DAPTOMYCIN. [Concomitant]
     Active Substance: DAPTOMYCIN
     Indication: ADVERSE EVENT
     Route: 065
     Dates: start: 20121012, end: 20121013
  13. ANTIBIOTICS [Concomitant]
     Active Substance: UNSPECIFIED INGREDIENT
     Indication: DEVICE RELATED INFECTION
     Route: 048
     Dates: start: 201210
  14. FLUCONAZOLE. [Concomitant]
     Active Substance: FLUCONAZOLE
     Route: 065
     Dates: start: 20140711, end: 20140716
  15. CLINDAMYCIN [Concomitant]
     Active Substance: CLINDAMYCIN\CLINDAMYCIN PHOSPHATE
     Indication: ADVERSE EVENT
     Route: 065
     Dates: start: 20140707, end: 20140708
  16. DEXAMETHASONE. [Suspect]
     Active Substance: DEXAMETHASONE
     Indication: PLASMA CELL MYELOMA
     Route: 048
     Dates: start: 20121003
  17. DIPHENHYDRAMINE [Concomitant]
     Active Substance: DIPHENHYDRAMINE
     Indication: PRODUCT USED FOR UNKNOWN INDICATION
     Route: 065
     Dates: start: 20140603, end: 20140603
  18. PEPCID [Concomitant]
     Active Substance: FAMOTIDINE
     Indication: PRODUCT USED FOR UNKNOWN INDICATION
     Route: 065
     Dates: start: 20121003
  19. CALCIUM-VITAMIN D [Concomitant]
     Indication: PRODUCT USED FOR UNKNOWN INDICATION
     Route: 065
     Dates: start: 20121021
  20. ZOMETA [Concomitant]
     Active Substance: ZOLEDRONIC ACID
     Indication: PRODUCT USED FOR UNKNOWN INDICATION
     Route: 065
     Dates: start: 20100626
  21. ZOMETA [Concomitant]
     Active Substance: ZOLEDRONIC ACID
     Route: 065
     Dates: start: 20110407
  22. PERCOCET [Concomitant]
     Active Substance: ACETAMINOPHEN\OXYCODONE HYDROCHLORIDE
     Indication: PRODUCT USED FOR UNKNOWN INDICATION
     Route: 065
     Dates: start: 20130328, end: 20130405
  23. INFED [Concomitant]
     Active Substance: IRON DEXTRAN
     Indication: PRODUCT USED FOR UNKNOWN INDICATION
     Route: 065
     Dates: start: 20140603, end: 20140603
  24. FLUCONAZOLE. [Concomitant]
     Active Substance: FLUCONAZOLE
     Indication: ADVERSE EVENT
     Route: 065
     Dates: start: 20140708, end: 20140710
  25. DEXAMETHASONE. [Suspect]
     Active Substance: DEXAMETHASONE
     Route: 041
     Dates: start: 20140603, end: 20140603
  26. SODIUM CHLORIDE. [Concomitant]
     Active Substance: SODIUM CHLORIDE
     Indication: PRODUCT USED FOR UNKNOWN INDICATION
     Route: 065
     Dates: start: 20121011, end: 20121020
  27. VITAMIN E [Concomitant]
     Active Substance: .ALPHA.-TOCOPHEROL
     Indication: PRODUCT USED FOR UNKNOWN INDICATION
     Route: 065
     Dates: start: 20121021
  28. MAGIC MOUTHWASH [Concomitant]
     Active Substance: DIPHENHYDRAMINE HYDROCHLORIDE\LIDOCAINE HYDROCHLORIDE\NYSTATIN
     Indication: ADVERSE EVENT
     Route: 048
     Dates: start: 20121129, end: 20121205
  29. CHERATUSSIN AC [Concomitant]
     Active Substance: CODEINE PHOSPHATE\GUAIFENESIN
     Indication: ADVERSE EVENT
     Route: 065
     Dates: start: 20121205, end: 20121212
  30. ROBITUSSIN (GUAIFENESIN) [Concomitant]
     Active Substance: GUAIFENESIN
     Indication: ADVERSE EVENT
     Route: 065
     Dates: start: 20130828, end: 20131002
  31. COUMADIN [Concomitant]
     Active Substance: WARFARIN SODIUM
     Route: 065
     Dates: start: 20131031
  32. TOBRAMYCIN. [Interacting]
     Active Substance: TOBRAMYCIN
     Indication: ADVERSE EVENT
     Route: 065
     Dates: start: 20121011, end: 20121011
  33. VANCOMYCIN [Concomitant]
     Active Substance: VANCOMYCIN
     Route: 065
     Dates: start: 20140707, end: 20140709
  34. DIPHENHYDRAMINE [Concomitant]
     Active Substance: DIPHENHYDRAMINE
     Route: 065
     Dates: start: 20140708, end: 20140714
  35. TYLENOL [Concomitant]
     Active Substance: ACETAMINOPHEN
     Route: 065
     Dates: start: 20130318, end: 20130318
  36. TYLENOL [Concomitant]
     Active Substance: ACETAMINOPHEN
     Route: 065
     Dates: start: 20130831
  37. METHYLPREDNISONE [Concomitant]
     Active Substance: METHYLPREDNISOLONE
     Indication: ADVERSE EVENT
     Route: 065
     Dates: start: 20121013, end: 20121020
  38. VITAMIN C [Concomitant]
     Active Substance: ASCORBIC ACID
     Indication: PRODUCT USED FOR UNKNOWN INDICATION
     Route: 065
     Dates: start: 20121021
  39. POTASSIUM CHLORIDE. [Concomitant]
     Active Substance: POTASSIUM CHLORIDE
     Route: 065
     Dates: start: 20131011
  40. POTASSIUM CHLORIDE. [Concomitant]
     Active Substance: POTASSIUM CHLORIDE
     Route: 065
     Dates: start: 20140708, end: 20140708
  41. ARIXTRA [Concomitant]
     Active Substance: FONDAPARINUX SODIUM
     Indication: PRODUCT USED FOR UNKNOWN INDICATION
     Route: 065
     Dates: start: 20100812, end: 20121012
  42. ARIXTRA [Concomitant]
     Active Substance: FONDAPARINUX SODIUM
     Route: 065
     Dates: start: 20130102
  43. IMODIUM [Concomitant]
     Active Substance: LOPERAMIDE HYDROCHLORIDE
     Indication: ADVERSE EVENT
     Route: 065
     Dates: start: 20130822, end: 20130911
  44. PERCOCET [Concomitant]
     Active Substance: ACETAMINOPHEN\OXYCODONE HYDROCHLORIDE
     Route: 065
     Dates: start: 20140210, end: 20140212
  45. FLU SHOT [Concomitant]
     Active Substance: INFLUENZA VIRUS VACCINE
     Indication: PRODUCT USED FOR UNKNOWN INDICATION
     Route: 065
     Dates: start: 20131202, end: 20131202
  46. CIPROFLOXACIN. [Concomitant]
     Active Substance: CIPROFLOXACIN
     Indication: ADVERSE EVENT
     Route: 065
     Dates: start: 20140711, end: 20140716
  47. MEROPENEM. [Concomitant]
     Active Substance: MEROPENEM
     Indication: ADVERSE EVENT
     Route: 065
     Dates: start: 20121011, end: 20121013
  48. ELOTUZUMAB [Suspect]
     Active Substance: ELOTUZUMAB
     Indication: PLASMA CELL MYELOMA
     Dosage: 990 MILLIGRAM
     Route: 041
     Dates: start: 20121003
  49. ZANTAC [Concomitant]
     Active Substance: RANITIDINE HYDROCHLORIDE
     Indication: PRODUCT USED FOR UNKNOWN INDICATION
     Route: 065
     Dates: start: 20121003
  50. BENADRYL [Concomitant]
     Active Substance: DIPHENHYDRAMINE HYDROCHLORIDE
     Indication: PRODUCT USED FOR UNKNOWN INDICATION
     Route: 065
     Dates: start: 20121012, end: 20121020
  51. TYLENOL [Concomitant]
     Active Substance: ACETAMINOPHEN
     Indication: ADVERSE EVENT
     Route: 065
     Dates: start: 20121003
  52. TYLENOL [Concomitant]
     Active Substance: ACETAMINOPHEN
     Route: 065
     Dates: start: 20121007, end: 20121007
  53. BUDESONIDE. [Concomitant]
     Active Substance: BUDESONIDE
     Indication: ADVERSE EVENT
     Route: 065
     Dates: start: 20121013, end: 20121020
  54. COMBIVENT [Concomitant]
     Active Substance: ALBUTEROL SULFATE\IPRATROPIUM BROMIDE
     Indication: ADVERSE EVENT
     Route: 065
     Dates: start: 20121021, end: 20121201
  55. LEVAQUIN [Concomitant]
     Active Substance: LEVOFLOXACIN
     Route: 065
     Dates: start: 20131022, end: 20131031
  56. LEVAQUIN [Concomitant]
     Active Substance: LEVOFLOXACIN
     Route: 065
     Dates: start: 20140528
  57. ARIXTRA [Concomitant]
     Active Substance: FONDAPARINUX SODIUM
     Indication: PRODUCT USED FOR UNKNOWN INDICATION
     Route: 065
     Dates: start: 20121013, end: 20121024
  58. ROCEPHIN [Concomitant]
     Active Substance: CEFTRIAXONE SODIUM
     Indication: PRODUCT USED FOR UNKNOWN INDICATION
     Route: 065
     Dates: start: 20130822, end: 20130822
  59. COUMADIN [Concomitant]
     Active Substance: WARFARIN SODIUM
     Route: 065
     Dates: start: 20121021, end: 20131030
  60. OXYCODONE [Concomitant]
     Active Substance: OXYCODONE
     Indication: PRODUCT USED FOR UNKNOWN INDICATION
     Route: 065
     Dates: start: 20140212
  61. VANCOMYCIN [Concomitant]
     Active Substance: VANCOMYCIN
     Indication: ADVERSE EVENT
     Route: 065
     Dates: start: 20121011, end: 20121011
  62. VENOFER [Concomitant]
     Active Substance: IRON SUCROSE
     Indication: ADVERSE EVENT
     Route: 065
     Dates: start: 20140709, end: 20140711
  63. REVLIMID [Suspect]
     Active Substance: LENALIDOMIDE
     Indication: PLASMA CELL MYELOMA
     Dosage: 25 MILLIGRAM
     Route: 048
     Dates: start: 20121003
  64. ASPIRIN. [Concomitant]
     Active Substance: ASPIRIN
     Indication: PRODUCT USED FOR UNKNOWN INDICATION
     Route: 065
     Dates: start: 20121003, end: 20121012
  65. BENADRYL [Concomitant]
     Active Substance: DIPHENHYDRAMINE HYDROCHLORIDE
     Route: 065
     Dates: start: 20140603, end: 20140603
  66. ALBUTEROL. [Concomitant]
     Active Substance: ALBUTEROL
     Route: 065
     Dates: start: 20130227
  67. AUGMENTIN [Concomitant]
     Active Substance: AMOXICILLIN\CLAVULANATE POTASSIUM
     Indication: ADVERSE EVENT
     Route: 065
     Dates: start: 20121205, end: 20121212
  68. LEVAQUIN [Concomitant]
     Active Substance: LEVOFLOXACIN
     Indication: PRODUCT USED FOR UNKNOWN INDICATION
     Route: 065
     Dates: start: 20130227, end: 20130305
  69. GABAPENTIN. [Concomitant]
     Active Substance: GABAPENTIN
     Indication: PRODUCT USED FOR UNKNOWN INDICATION
     Route: 065
     Dates: start: 20140212
  70. MAGNESIUM SULFATE. [Concomitant]
     Active Substance: MAGNESIUM SULFATE
     Indication: ADVERSE EVENT
     Route: 065
     Dates: start: 20121011
  71. CEFEPIME [Concomitant]
     Active Substance: CEFEPIME\CEFEPIME HYDROCHLORIDE
     Indication: PRODUCT USED FOR UNKNOWN INDICATION
     Route: 065
     Dates: start: 20140707, end: 20140711
  72. PANTOPRAZOLE [Concomitant]
     Active Substance: PANTOPRAZOLE SODIUM
     Indication: PRODUCT USED FOR UNKNOWN INDICATION
     Route: 065
     Dates: start: 20121012, end: 20121015
  73. ALBUTEROL. [Concomitant]
     Active Substance: ALBUTEROL
     Indication: ADVERSE EVENT
     Route: 065
     Dates: start: 20121013
  74. VITAMIN B12 [Concomitant]
     Active Substance: CYANOCOBALAMIN
     Indication: PRODUCT USED FOR UNKNOWN INDICATION
     Route: 065
     Dates: start: 20121021
  75. POTASSIUM CHLORIDE. [Concomitant]
     Active Substance: POTASSIUM CHLORIDE
     Indication: ADVERSE EVENT
     Route: 065
     Dates: start: 20121219, end: 20130131
  76. BACLOFEN. [Concomitant]
     Active Substance: BACLOFEN
     Route: 065
     Dates: start: 20131113
  77. LEVAQUIN [Concomitant]
     Active Substance: LEVOFLOXACIN
     Indication: ADVERSE EVENT
     Route: 065
     Dates: start: 20130904, end: 20130910
  78. ARIXTRA [Concomitant]
     Active Substance: FONDAPARINUX SODIUM
     Route: 065
     Dates: start: 20121025, end: 20121114
  79. COUMADIN [Concomitant]
     Active Substance: WARFARIN SODIUM
     Indication: ADVERSE EVENT
     Route: 065
     Dates: start: 20121018, end: 20121020
  80. PROTONIX [Concomitant]
     Active Substance: PANTOPRAZOLE SODIUM
     Indication: PRODUCT USED FOR UNKNOWN INDICATION
     Route: 065
     Dates: start: 20140708, end: 20140714
  81. BACTRIM [Concomitant]
     Active Substance: SULFAMETHOXAZOLE\TRIMETHOPRIM
     Indication: DEVICE RELATED INFECTION
     Route: 065
     Dates: start: 20121010, end: 20121020
  82. OXACILLIN [Concomitant]
     Active Substance: OXACILLIN SODIUM
     Indication: ADVERSE EVENT
     Route: 065
     Dates: start: 20121019, end: 20121020
  83. ACETAMINOPHEN. [Concomitant]
     Active Substance: ACETAMINOPHEN
     Indication: ADVERSE EVENT
     Route: 065
     Dates: start: 20140707, end: 20140708

REACTIONS (1)
  - Device related infection [Recovered/Resolved]

NARRATIVE: CASE EVENT DATE: 20121010
